FAERS Safety Report 7543276-4 (Version None)
Quarter: 2011Q2

REPORT INFORMATION
  Report Type: 
  Country: None (occurrence: None)
  Receive Date: 20110525
  Receipt Date: 20110411
  Transmission Date: 20111010
  Serious: Yes (Other)
  Sender: FDA-Public Use
  Company Number: 2011028214

PATIENT
  Sex: Female

DRUGS (1)
  1. HIZENTRA [Suspect]
     Indication: IMMUNODEFICIENCY COMMON VARIABLE
     Dosage: 7 G 1X/WEEK, IN 2 SITES SUBCUTANEOUS
     Route: 058
     Dates: start: 20100701

REACTIONS (6)
  - URINARY TRACT INFECTION [None]
  - BLOOD URINE PRESENT [None]
  - ULTRASOUND KIDNEY ABNORMAL [None]
  - NEOPLASM [None]
  - PROTEIN URINE [None]
  - RED BLOOD CELLS URINE [None]
